FAERS Safety Report 4700468-7 (Version None)
Quarter: 2005Q2

REPORT INFORMATION
  Report Type: 
  Country: None (occurrence: None)
  Receive Date: 20050627
  Receipt Date: 20050614
  Transmission Date: 20051028
  Serious: Yes (Hospitalization)
  Sender: FDA-Public Use
  Company Number: US-ROCHE-407835

PATIENT
  Age: 40 Year
  Sex: Male
  Weight: 116.1 kg

DRUGS (2)
  1. PEG-INTERFERON ALFA 2A (RO 25-8310) [Suspect]
     Route: 058
     Dates: start: 20050131, end: 20050214
  2. RIBAVIRIN [Suspect]
     Route: 048
     Dates: start: 20050131, end: 20050214

REACTIONS (6)
  - ERYTHEMA MULTIFORME [None]
  - EYE SWELLING [None]
  - PRURITUS [None]
  - RASH [None]
  - SWELLING FACE [None]
  - URTICARIA [None]
